FAERS Safety Report 4270080-5 (Version None)
Quarter: 2004Q1

REPORT INFORMATION
  Report Type: 
  Country: None (occurrence: None)
  Receive Date: 20040114
  Receipt Date: 20030210
  Transmission Date: 20041129
  Serious: No
  Sender: FDA-Public Use
  Company Number: US-GLAXOSMITHKLINE-A0396049A

PATIENT
  Age: 48 Year
  Sex: Male

DRUGS (2)
  1. BUPROPRION HCL [Suspect]
     Indication: DEPRESSION
     Dosage: 100MG TWICE PER DAY
     Route: 048
     Dates: end: 20030208
  2. METHOCARBAMOL [Concomitant]

REACTIONS (2)
  - CONSTIPATION [None]
  - URTICARIA [None]
